FAERS Safety Report 5567457-4 (Version None)
Quarter: 2007Q4

REPORT INFORMATION
  Report Type: 
  Country: None (occurrence: None)
  Receive Date: 20071214
  Receipt Date: 20071128
  Transmission Date: 20080405
  Serious: Yes (Hospitalization)
  Sender: FDA-Public Use
  Company Number: 530#6#2007-00058

PATIENT
  Age: 82 Year
  Sex: Female

DRUGS (22)
  1. NEURPO-PATCH-DOSE-UNKNOWN (ROTIGOTINE) [Suspect]
     Indication: PARKINSON'S DISEASE
     Dosage: SEE IMAGE
     Route: 062
     Dates: start: 20060817, end: 20060831
  2. NEURPO-PATCH-DOSE-UNKNOWN (ROTIGOTINE) [Suspect]
     Indication: PARKINSON'S DISEASE
     Dosage: SEE IMAGE
     Route: 062
     Dates: start: 20060901, end: 20070515
  3. NEURPO-PATCH-DOSE-UNKNOWN (ROTIGOTINE) [Suspect]
     Indication: PARKINSON'S DISEASE
     Dosage: SEE IMAGE
     Route: 062
     Dates: start: 20070516
  4. CARBIDOPA AND LEVODOPA [Suspect]
     Indication: PARKINSON'S DISEASE
     Dosage: 25/100MG TWICE DAILY; 25/100MG THREE TIMES DAILY; 25/200MG FOUR TIMES DAILY ORAL
     Route: 048
     Dates: start: 20061213, end: 20061216
  5. CARBIDOPA AND LEVODOPA [Suspect]
     Indication: PARKINSON'S DISEASE
     Dosage: 25/100MG TWICE DAILY; 25/100MG THREE TIMES DAILY; 25/200MG FOUR TIMES DAILY ORAL
     Route: 048
     Dates: start: 20061217, end: 20071115
  6. CARBIDOPA AND LEVODOPA [Suspect]
     Indication: PARKINSON'S DISEASE
     Dosage: 25/100MG TWICE DAILY; 25/100MG THREE TIMES DAILY; 25/200MG FOUR TIMES DAILY ORAL
     Route: 048
     Dates: start: 20071116
  7. AMANTADINE 100MG, TABLETS (AMANTADINE) [Suspect]
     Indication: PARKINSON'S DISEASE
  8. CARBIDOPA AND LEVODOPA [Suspect]
     Indication: PARKINSON'S DISEASE
     Dosage: SEE IMAGE
     Route: 048
     Dates: start: 20061116, end: 20061119
  9. CARBIDOPA AND LEVODOPA [Suspect]
     Indication: PARKINSON'S DISEASE
     Dosage: SEE IMAGE
     Route: 048
     Dates: start: 20061120, end: 20061122
  10. CARBIDOPA AND LEVODOPA [Suspect]
     Indication: PARKINSON'S DISEASE
     Dosage: SEE IMAGE
     Route: 048
     Dates: start: 20061123, end: 20061125
  11. CARBIDOPA AND LEVODOPA [Suspect]
     Indication: PARKINSON'S DISEASE
     Dosage: SEE IMAGE
     Route: 048
     Dates: start: 20061204, end: 20061206
  12. CARBIDOPA AND LEVODOPA [Suspect]
     Indication: PARKINSON'S DISEASE
     Dosage: SEE IMAGE
     Route: 048
     Dates: start: 20061207, end: 20061209
  13. CARBIDOPA AND LEVODOPA [Suspect]
     Indication: PARKINSON'S DISEASE
     Dosage: SEE IMAGE
     Route: 048
     Dates: start: 20061210, end: 20061212
  14. CARBIDOPA AND LEVODOPA [Suspect]
     Indication: PARKINSON'S DISEASE
     Dosage: SEE IMAGE
     Route: 048
     Dates: start: 20061213, end: 20061216
  15. ENALAPRIL 5MG, TABLETS (ENALAPRIL) [Concomitant]
  16. ALENDRONIC ACID 10 MG, CAPSULES (ALENDRONIC ACID) [Concomitant]
  17. OPIPRAMOL 50MG, TABLETS (OPIPRAMOL) [Concomitant]
  18. OMEPRAZOLE 20MG, CAPSULES (OMEPRAZOLE) [Concomitant]
  19. (TRIAMTERENE 50MG AND HYDROCHLOROTHIAZIDE 25MG), TABLETS (TRIAMTERENE, [Concomitant]
  20. LORAZEPAM 2MG, TABLETS (LORAZEPAM) [Concomitant]
  21. IBUPROFEN 800MG, TABLETS (IBUPROFEN) [Concomitant]
  22. CALCIUM 500MG, TABLETS (CALCIUM) [Concomitant]

REACTIONS (2)
  - DEHYDRATION [None]
  - FAECALOMA [None]
